FAERS Safety Report 13824122 (Version 1)
Quarter: 2017Q3

REPORT INFORMATION
  Report Type: Spontaneous
  Country: US (occurrence: US)
  Receive Date: 20170802
  Receipt Date: 20170802
  Transmission Date: 20171127
  Serious: Yes (Hospitalization)
  Sender: FDA-Public Use
  Company Number: US-BEH-2017082399

PATIENT
  Sex: Female
  Weight: 49.43 kg

DRUGS (14)
  1. ZOLPIDEM [Concomitant]
     Active Substance: ZOLPIDEM\ZOLPIDEM TARTRATE
  2. EVOXAC [Concomitant]
     Active Substance: CEVIMELINE HYDROCHLORIDE
  3. LIDOCAINE/PRILOCAINE [Concomitant]
     Active Substance: LIDOCAINE\PRILOCAINE
  4. LYRICA [Concomitant]
     Active Substance: PREGABALIN
  5. PROBIOTIC                          /06395501/ [Concomitant]
     Active Substance: BIFIDOBACTERIUM ANIMALIS LACTIS
  6. OMEPRAZOLE. [Concomitant]
     Active Substance: OMEPRAZOLE
  7. ACETAMINOPHEN. [Concomitant]
     Active Substance: ACETAMINOPHEN
  8. LIDOCAINE. [Concomitant]
     Active Substance: LIDOCAINE
  9. EPINEPHRINE. [Concomitant]
     Active Substance: EPINEPHRINE
  10. CALCIUM [Concomitant]
     Active Substance: CALCIUM
  11. BENAZEPRIL [Concomitant]
     Active Substance: BENAZEPRIL HYDROCHLORIDE
  12. MULTIVITAMINS [Concomitant]
     Active Substance: VITAMINS
  13. HIZENTRA [Suspect]
     Active Substance: HUMAN IMMUNOGLOBULIN G
     Indication: IMMUNODEFICIENCY COMMON VARIABLE
     Dosage: 8 G, QW
     Route: 058
     Dates: start: 20100720
  14. HYDROXYCHLOROQUINE [Concomitant]
     Active Substance: HYDROXYCHLOROQUINE

REACTIONS (2)
  - Dehydration [Unknown]
  - Splenic rupture [Unknown]
